FAERS Safety Report 11073809 (Version 1)
Quarter: 2015Q2

REPORT INFORMATION
  Report Type: Spontaneous
  Country: JP (occurrence: JP)
  Receive Date: 20150428
  Receipt Date: 20150428
  Transmission Date: 20150821
  Serious: Yes (Other)
  Sender: FDA-Public Use
  Company Number: PHBS2001JP08399

PATIENT
  Age: 67 Year
  Sex: Female
  Weight: 40 kg

DRUGS (4)
  1. DIOVAN [Suspect]
     Active Substance: VALSARTAN
     Route: 048
     Dates: start: 20010809, end: 20010813
  2. METHYCOBAL [Suspect]
     Active Substance: METHYLCOBALAMIN
     Indication: NEUROPATHY PERIPHERAL
     Dosage: 1500 UG/D
     Route: 048
     Dates: start: 20010811, end: 20010813
  3. DIOVAN [Suspect]
     Active Substance: VALSARTAN
     Indication: HYPERTENSION
     Dosage: 80 MG/D
     Route: 048
     Dates: start: 20010809, end: 20010813
  4. NEUTROGIN [Suspect]
     Active Substance: LENOGRASTIM
     Indication: CHEMOTHERAPY
     Dosage: 100 UG/D
     Route: 048
     Dates: start: 20010809, end: 20010813

REACTIONS (7)
  - Blood lactate dehydrogenase increased [Recovered/Resolved]
  - Hepatic enzyme increased [Recovering/Resolving]
  - Blood alkaline phosphatase increased [Recovered/Resolved]
  - Hepatic enzyme abnormal [Recovered/Resolved]
  - Aspartate aminotransferase increased [Recovered/Resolved]
  - Alanine aminotransferase increased [Recovered/Resolved]
  - Rash [Recovered/Resolved]

NARRATIVE: CASE EVENT DATE: 20010813
